FAERS Safety Report 11122189 (Version 1)
Quarter: 2015Q2

REPORT INFORMATION
  Report Type: Spontaneous
  Country: CA (occurrence: None)
  Receive Date: 20150518
  Receipt Date: 20150518
  Transmission Date: 20150821
  Serious: No
  Sender: FDA-Public Use
  Company Number: None

PATIENT
  Age: 67 Year
  Sex: Female

DRUGS (1)
  1. ATIVAN [Suspect]
     Active Substance: LORAZEPAM
     Dates: start: 20150502, end: 20150511

REACTIONS (5)
  - Abdominal pain upper [None]
  - Agitation [None]
  - Product shape issue [None]
  - Product quality issue [None]
  - Diarrhoea [None]

NARRATIVE: CASE EVENT DATE: 20150502
